FAERS Safety Report 5444881-1 (Version None)
Quarter: 2007Q3

REPORT INFORMATION
  Report Type: 
  Country: None (occurrence: None)
  Receive Date: 20070904
  Receipt Date: 20070904
  Transmission Date: 20080115
  Serious: Yes (Life-Threatening)
  Sender: FDA-Public Use
  Company Number: None

PATIENT
  Age: 47 Year
  Sex: Female
  Weight: 63.5036 kg

DRUGS (1)
  1. MOXIFLOXACIN HCL [Suspect]
     Indication: OTITIS MEDIA
     Dosage: 400MG  2X A DAY  PO
     Route: 048
     Dates: start: 20070829, end: 20070830

REACTIONS (3)
  - DIZZINESS [None]
  - PALPITATIONS [None]
  - TREMOR [None]
